FAERS Safety Report 9260603 (Version 1)
Quarter: 2013Q2

REPORT INFORMATION
  Report Type: Spontaneous
  Country: JP (occurrence: JP)
  Receive Date: 20130429
  Receipt Date: 20130429
  Transmission Date: 20140414
  Serious: Yes (Other)
  Sender: FDA-Public Use
  Company Number: JP-BRISTOL-MYERS SQUIBB COMPANY-18838714

PATIENT
  Age: 57 Year
  Sex: Male
  Weight: 52 kg

DRUGS (10)
  1. ERBITUX SOLN FOR INF 5MG/ML [Suspect]
     Indication: HYPOPHARYNGEAL CANCER
     Dosage: 600MG:18FEB13.370MG:25FEB13,07MAR13
     Route: 041
     Dates: start: 20130218, end: 20130307
  2. CRAVIT [Concomitant]
     Indication: PYREXIA
     Route: 048
     Dates: start: 20130227
  3. CALONAL [Concomitant]
     Indication: PAIN
     Route: 048
     Dates: start: 20120326
  4. CEFEPIME HCL [Concomitant]
     Indication: INFECTION PROPHYLAXIS
     Dates: start: 20130304
  5. NAIXAN [Concomitant]
     Indication: PYREXIA
     Route: 048
     Dates: start: 20130304
  6. OXINORM [Concomitant]
     Indication: OROPHARYNGEAL PAIN
     Route: 048
     Dates: start: 20130305
  7. MAGLAX [Concomitant]
     Indication: DISBACTERIOSIS
     Route: 048
     Dates: start: 20120326
  8. URSO [Concomitant]
     Route: 048
     Dates: start: 20130307
  9. OXYCONTIN [Concomitant]
     Indication: PHARYNGEAL INFLAMMATION
     Dosage: SINCE 05MAR13;14MAR13
     Route: 048
     Dates: start: 20120326
  10. OXYCONTIN [Concomitant]
     Indication: PAIN
     Dosage: SINCE 05MAR13;14MAR13
     Route: 048
     Dates: start: 20120326

REACTIONS (1)
  - Myocardial infarction [Recovering/Resolving]
